FAERS Safety Report 6510005-2 (Version None)
Quarter: 2009Q4

REPORT INFORMATION
  Report Type: 
  Country: None (occurrence: None)
  Receive Date: 20091222
  Receipt Date: 20091104
  Transmission Date: 20100525
  Serious: No
  Sender: FDA-Public Use
  Company Number: US-ABBOTT-09P-163-0601476-00

PATIENT
  Sex: Female

DRUGS (6)
  1. OMNICEF [Suspect]
     Indication: SINUSITIS
     Dates: start: 20090501, end: 20090501
  2. OMNICEF [Suspect]
     Indication: EAR INFECTION
     Dates: start: 20091006, end: 20091007
  3. SYNTHROID [Concomitant]
     Indication: HYPOTHYROIDISM
  4. POTASSIUM CHLORIDE [Concomitant]
     Indication: BLOOD POTASSIUM DECREASED
  5. ACIPHEX [Concomitant]
     Indication: DYSPEPSIA
  6. TYLENOL (CAPLET) [Concomitant]
     Indication: MIGRAINE

REACTIONS (9)
  - COUGH [None]
  - DRUG INEFFECTIVE [None]
  - DRY THROAT [None]
  - DYSPEPSIA [None]
  - DYSPHAGIA [None]
  - ERUCTATION [None]
  - HEADACHE [None]
  - PRODUCT TASTE ABNORMAL [None]
  - SINUSITIS [None]
